FAERS Safety Report 4859719-0 (Version None)
Quarter: 2005Q4

REPORT INFORMATION
  Report Type: 
  Country: None (occurrence: None)
  Receive Date: 20051215
  Receipt Date: 20051205
  Transmission Date: 20060501
  Serious: Yes (Hospitalization, Other)
  Sender: FDA-Public Use
  Company Number: CHPA2003US02257

PATIENT
  Sex: Female

DRUGS (7)
  1. EX-LAX LAXATIVE UNKNOWN FORMULA (NCH) (UNKNOWN) UNKNOWN [Suspect]
     Dosage: ORAL
     Route: 048
     Dates: start: 19990101
  2. FEEN-A-MINT (PHENOLPHTHALEIN) [Suspect]
     Dosage: ORAL
     Route: 048
     Dates: start: 19990101
  3. HYDROCHLOROTHIAZIDE [Concomitant]
  4. MISOPROSTOL [Concomitant]
  5. NAPROXEN [Concomitant]
  6. PAROXETINE HCL [Concomitant]
  7. SERTRALINE HCL [Concomitant]

REACTIONS (6)
  - DRUG DEPENDENCE [None]
  - ECONOMIC PROBLEM [None]
  - EMOTIONAL DISORDER [None]
  - INJURY [None]
  - LAXATIVE ABUSE [None]
  - STOMACH DISCOMFORT [None]
